FAERS Safety Report 7067637-5 (Version None)
Quarter: 2010Q4

REPORT INFORMATION
  Report Type: 
  Country: None (occurrence: None)
  Receive Date: 20101028
  Receipt Date: 20101020
  Transmission Date: 20110411
  Serious: Yes (Hospitalization)
  Sender: FDA-Public Use
  Company Number: GB-TEVA-249515ISR

PATIENT
  Age: 51 Year
  Sex: Male
  Weight: 71 kg

DRUGS (1)
  1. VINCRISTINE [Suspect]
     Indication: GLIOMA
     Route: 042
     Dates: start: 20100607, end: 20100607

REACTIONS (1)
  - HEPATITIS [None]
